FAERS Safety Report 9711653 (Version 1)
Quarter: 2013Q4

REPORT INFORMATION
  Report Type: Spontaneous
  Country: US (occurrence: US)
  Receive Date: 20131126
  Receipt Date: 20131126
  Transmission Date: 20140711
  Serious: No
  Sender: FDA-Public Use
  Company Number: US-BRISTOL-MYERS SQUIBB COMPANY-19083948

PATIENT
  Age: 74 Year
  Sex: Female
  Weight: 74.37 kg

DRUGS (2)
  1. BYDUREON [Suspect]
     Indication: TYPE 2 DIABETES MELLITUS
     Dosage: PRESCRIPTION NUMBER: 1106072
     Route: 058
     Dates: start: 20130527
  2. GLIPIZIDE [Concomitant]
     Indication: BLOOD GLUCOSE
     Route: 048

REACTIONS (4)
  - Injection site swelling [Not Recovered/Not Resolved]
  - Injection site haemorrhage [Recovered/Resolved]
  - Blood pressure increased [Unknown]
  - Injection site pruritus [Unknown]
